FAERS Safety Report 12137146 (Version 2)
Quarter: 2016Q1

REPORT INFORMATION
  Report Type: Report from Study
  Country: GT (occurrence: GT)
  Receive Date: 20160302
  Receipt Date: 20160316
  Transmission Date: 20160526
  Serious: Yes (Other)
  Sender: FDA-Public Use
  Company Number: PHHY2016GT026961

PATIENT
  Age: 69 Year
  Sex: Male
  Weight: 65.76 kg

DRUGS (2)
  1. EXFORGE [Suspect]
     Active Substance: AMLODIPINE BESYLATE\VALSARTAN
     Indication: HYPERTENSION
     Dosage: AMLODIPINE 10 MG AND VALSARTAN 320 MG), UNK
     Route: 065
     Dates: start: 2012
  2. EXFORGE [Suspect]
     Active Substance: AMLODIPINE BESYLATE\VALSARTAN
     Dosage: UNK
     Route: 065
     Dates: start: 20160226

REACTIONS (6)
  - Blood glucose abnormal [Unknown]
  - Anger [Recovering/Resolving]
  - Abdominal distension [Recovered/Resolved]
  - Gastritis [Unknown]
  - Blood pressure inadequately controlled [Recovering/Resolving]
  - Diabetes mellitus [Not Recovered/Not Resolved]

NARRATIVE: CASE EVENT DATE: 2015
